FAERS Safety Report 4371475-1 (Version None)
Quarter: 2004Q2

REPORT INFORMATION
  Report Type: 
  Country: None (occurrence: None)
  Receive Date: 20040601
  Receipt Date: 20040514
  Transmission Date: 20050107
  Serious: Yes (Other)
  Sender: FDA-Public Use
  Company Number: 2004-DE-02864GD

PATIENT
  Age: 29 Year
  Sex: Male

DRUGS (3)
  1. NEVIRAPINE (NEVIRAPINE) [Suspect]
     Indication: HIV INFECTION
  2. AZT [Suspect]
     Indication: HIV INFECTION
  3. 3TC (LAMIVUDINE) [Suspect]
     Indication: HIV INFECTION

REACTIONS (2)
  - IMMUNE RECONSTITUTION SYNDROME [None]
  - PROGRESSIVE MULTIFOCAL LEUKOENCEPHALOPATHY [None]
